FAERS Safety Report 17997596 (Version 2)
Quarter: 2022Q2

REPORT INFORMATION
  Report Type: Spontaneous
  Country: CA (occurrence: CA)
  Receive Date: 20200708
  Receipt Date: 20220422
  Transmission Date: 20220720
  Serious: Yes (Hospitalization, Other)
  Sender: FDA-Public Use
  Company Number: CA-ANIPHARMA-2020-CA-000992

PATIENT
  Age: 54 Year
  Sex: Female

DRUGS (10)
  1. ANASTROZOLE [Suspect]
     Active Substance: ANASTROZOLE
     Indication: Breast cancer
     Route: 048
  2. EPIRUBICIN [Suspect]
     Active Substance: EPIRUBICIN
     Route: 042
  3. TAMOXIFEN [Suspect]
     Active Substance: TAMOXIFEN
     Route: 048
     Dates: start: 2011, end: 2013
  4. CYCLOPHOSPHAMIDE [Suspect]
     Active Substance: CYCLOPHOSPHAMIDE
     Route: 065
  5. DOCETAXEL [Suspect]
     Active Substance: DOCETAXEL
     Route: 042
     Dates: start: 2012
  6. FLUOROURACIL [Suspect]
     Active Substance: FLUOROURACIL
     Route: 065
  7. XGEVA [Suspect]
     Active Substance: DENOSUMAB
     Dosage: 120 MG MONTH / 120 MG Q3MO
     Route: 058
     Dates: end: 201202
  8. CALCIUM [Concomitant]
     Active Substance: CALCIUM
     Dosage: 500 MG UNKNOWN FREQUENCY
     Route: 065
  9. CITALOPRAM [Concomitant]
     Active Substance: CITALOPRAM HYDROBROMIDE
     Route: 065
  10. VITAMIN D3 [Concomitant]
     Active Substance: CHOLECALCIFEROL
     Dosage: 400 IU DAILY
     Route: 065

REACTIONS (6)
  - Asthenia [Recovering/Resolving]
  - Constipation [Recovering/Resolving]
  - Diabetes insipidus [Recovering/Resolving]
  - Hypercalcaemia [Recovered/Resolved]
  - Menopause [Not Recovered/Not Resolved]
  - Rebound effect [Recovered/Resolved]
